FAERS Safety Report 16783392 (Version 2)
Quarter: 2021Q4

REPORT INFORMATION
  Report Type: Spontaneous
  Country: CA (occurrence: CA)
  Receive Date: 20190907
  Receipt Date: 20211029
  Transmission Date: 20220303
  Serious: Yes (Hospitalization, Other)
  Sender: FDA-Public Use
  Company Number: CA-AUROBINDO-AUR-APL-2019-058271

PATIENT
  Age: 68 Year
  Sex: Female
  Weight: 65 kg

DRUGS (5)
  1. RAMIPRIL [Suspect]
     Active Substance: RAMIPRIL
     Indication: Hypertension
     Dosage: UNK
     Route: 065
  2. MODERIBA [Suspect]
     Active Substance: RIBAVIRIN
     Indication: Hepatitis C
     Dosage: 200 MILLIGRAM, TWO TIMES A DAY
     Route: 048
  3. TECHNIVIE [Suspect]
     Active Substance: OMBITASVIR HEMINONAHYDRATE\PARITAPREVIR DIHYDRATE\RITONAVIR
     Indication: Hepatitis C
     Dosage: UNK
     Route: 048
  4. GLYBURIDE [Concomitant]
     Active Substance: GLYBURIDE
     Indication: Product used for unknown indication
     Dosage: 5 MILLIGRAM, DAILY
     Route: 048
  5. METFORMIN [Concomitant]
     Active Substance: METFORMIN HYDROCHLORIDE
     Indication: Product used for unknown indication
     Dosage: UNK
     Route: 065

REACTIONS (4)
  - Oedema due to hepatic disease [Recovered/Resolved]
  - Anaemia [Recovered/Resolved]
  - Angioedema [Recovered/Resolved]
  - Oedema [Recovered/Resolved]
